FAERS Safety Report 17899946 (Version 1)
Quarter: 2020Q2

REPORT INFORMATION
  Report Type: Spontaneous
  Country: US (occurrence: US)
  Receive Date: 20200615
  Receipt Date: 20200615
  Transmission Date: 20200714
  Serious: No
  Sender: FDA-Public Use
  Company Number: None

PATIENT
  Age: 40 Year
  Sex: Female
  Weight: 69.75 kg

DRUGS (4)
  1. FISH OIL [Concomitant]
     Active Substance: FISH OIL
  2. ARMOUR THYROID [Concomitant]
     Active Substance: THYROID, PORCINE
  3. FOLATE [Concomitant]
     Active Substance: FOLATE SODIUM
  4. LIOTHYRONINE 5MCG TAB [Suspect]
     Active Substance: LIOTHYRONINE SODIUM
     Indication: AUTOIMMUNE THYROIDITIS
     Dosage: ?          QUANTITY:30 TABLET(S);?
     Route: 048
     Dates: start: 20200611, end: 20200614

REACTIONS (1)
  - Headache [None]

NARRATIVE: CASE EVENT DATE: 20200614
